FAERS Safety Report 14109748 (Version 1)
Quarter: 2017Q4

REPORT INFORMATION
  Report Type: Spontaneous
  Country: CN (occurrence: CN)
  Receive Date: 20171020
  Receipt Date: 20171020
  Transmission Date: 20180321
  Serious: Yes (Hospitalization)
  Sender: FDA-Public Use
  Company Number: CN-BAXTER-2017BAX035601

PATIENT
  Age: 23 Year
  Sex: Female

DRUGS (7)
  1. SODIUM CHLORIDE PHYSIOLOGICAL SOLUTION [Suspect]
     Active Substance: SODIUM CHLORIDE
     Dosage: SOLVENT FOR FLURBIPROFEN AXETIL INJECTION
     Route: 041
     Dates: start: 20170709, end: 20170720
  2. FLURBIPROFEN AXETIL [Suspect]
     Active Substance: FLURBIPROFEN AXETIL
     Indication: PAIN
     Route: 041
     Dates: start: 20170709, end: 20170720
  3. SANQI PANAX NOTOGINSENG [Suspect]
     Active Substance: PANAX NOTOGINSENG ROOT
     Indication: CARDIOVASCULAR DISORDER
     Route: 041
     Dates: start: 20170708, end: 20170720
  4. SODIUM CHLORIDE PHYSIOLOGICAL SOLUTION [Suspect]
     Active Substance: SODIUM CHLORIDE
     Indication: MEDICATION DILUTION
     Dosage: SOLVENT FOR CERVUS AND CUCUMIS POLYPEPTIDE
     Route: 041
     Dates: start: 20170708, end: 20170723
  5. SODIUM CHLORIDE PHYSIOLOGICAL SOLUTION [Suspect]
     Active Substance: SODIUM CHLORIDE
     Dosage: SOLVENT FOR SANQI PANAX NOTOGINSENG FOR INJECTION
     Route: 041
     Dates: start: 20170708, end: 20170720
  6. 5% GLUCOSE  INJECTION [Suspect]
     Active Substance: DEXTROSE
     Indication: MEDICATION DILUTION
     Dosage: SOLVENT FOR OXIRACETAM INJECTION
     Route: 041
     Dates: start: 20170708, end: 20170720
  7. OXIRACETAM [Suspect]
     Active Substance: OXIRACETAM
     Indication: MEMORY IMPAIRMENT
     Route: 041
     Dates: start: 20170708, end: 20170720

REACTIONS (2)
  - Hypersensitivity [Recovering/Resolving]
  - Rash [Recovering/Resolving]

NARRATIVE: CASE EVENT DATE: 20170720
